FAERS Safety Report 21093718 (Version 2)
Quarter: 2022Q3

REPORT INFORMATION
  Report Type: Spontaneous
  Country: US (occurrence: US)
  Receive Date: 20220718
  Receipt Date: 20220807
  Transmission Date: 20221026
  Serious: No
  Sender: FDA-Public Use
  Company Number: US-SA-SAC20220714001894

PATIENT
  Age: 52 Year
  Sex: Female
  Weight: 91 kg

DRUGS (3)
  1. DUPIXENT [Suspect]
     Active Substance: DUPILUMAB
     Indication: Asthma
     Dosage: 300 MG, QOW
     Route: 058
     Dates: start: 20220415, end: 20220429
  2. DUPIXENT [Suspect]
     Active Substance: DUPILUMAB
     Dosage: 300 MG, QOW
     Route: 058
     Dates: start: 20220708
  3. PREDNISONE [Concomitant]
     Active Substance: PREDNISONE
     Indication: Asthma
     Dosage: 10 MG, QD
     Route: 048
     Dates: start: 20220715

REACTIONS (3)
  - Fatigue [Unknown]
  - COVID-19 [Recovered/Resolved]
  - Foreign body sensation in eyes [Unknown]

NARRATIVE: CASE EVENT DATE: 20220509
